FAERS Safety Report 7657578-4 (Version None)
Quarter: 2011Q3

REPORT INFORMATION
  Report Type: 
  Country: None (occurrence: None)
  Receive Date: 20110804
  Receipt Date: 20110728
  Transmission Date: 20111222
  Serious: Yes (Life-Threatening)
  Sender: FDA-Public Use
  Company Number: JP-AMGEN-JPNSP2011038740

PATIENT
  Age: 78 Year
  Sex: Male

DRUGS (2)
  1. PREDNISOLONE [Concomitant]
     Dosage: UNK
  2. ENBREL [Suspect]
     Indication: RHEUMATOID ARTHRITIS
     Dosage: 25 MG, 2X/WEEK
     Route: 058
     Dates: start: 20090401, end: 20110712

REACTIONS (2)
  - PRODUCTIVE COUGH [None]
  - COUGH [None]
